FAERS Safety Report 15765167 (Version 2)
Quarter: 2019Q1

REPORT INFORMATION
  Report Type: Spontaneous
  Country: US (occurrence: US)
  Receive Date: 20181227
  Receipt Date: 20190102
  Transmission Date: 20190417
  Serious: Yes (Hospitalization)
  Sender: FDA-Public Use
  Company Number: US-GBPHLPEH-T201600610

PATIENT

DRUGS (3)
  1. GABLOFEN [Suspect]
     Active Substance: BACLOFEN
     Indication: MUSCLE SPASTICITY
     Dosage: 680 ?G, UNK
     Route: 037
     Dates: start: 20141014
  2. GABLOFEN [Suspect]
     Active Substance: BACLOFEN
     Indication: HEAD INJURY
  3. LIORESAL [Concomitant]
     Active Substance: BACLOFEN
     Dosage: UNK
     Route: 037
     Dates: start: 20160219

REACTIONS (4)
  - Infection [Recovered/Resolved]
  - Drug ineffective [Recovered/Resolved]
  - Device issue [Recovered/Resolved]
  - Muscle spasticity [Recovered/Resolved]

NARRATIVE: CASE EVENT DATE: 201602
